FAERS Safety Report 17193833 (Version 2)
Quarter: 2020Q3

REPORT INFORMATION
  Report Type: Report from Study
  Country: US (occurrence: US)
  Receive Date: 20191223
  Receipt Date: 20200805
  Transmission Date: 20201102
  Serious: No
  Sender: FDA-Public Use
  Company Number: PHHY2018US007794

PATIENT
  Age: 32 Year
  Sex: Female

DRUGS (2)
  1. GILENYA [Suspect]
     Active Substance: FINGOLIMOD HYDROCHLORIDE
     Indication: MULTIPLE SCLEROSIS
     Dosage: UNK, QD
     Route: 048
  2. VITAMIN D [Concomitant]
     Active Substance: VITAMIN D NOS
     Indication: VITAMIN D DECREASED
     Dosage: UNK
     Route: 065
     Dates: start: 20170315

REACTIONS (7)
  - Headache [Recovered/Resolved]
  - Paraesthesia [Recovered/Resolved]
  - Melanocytic naevus [Unknown]
  - Fibrous histiocytoma [Unknown]
  - Haemangioma [Not Recovered/Not Resolved]
  - Muscular weakness [Unknown]
  - Solar lentigo [Unknown]

NARRATIVE: CASE EVENT DATE: 20170201
